FAERS Safety Report 9433696 (Version 2)
Quarter: 2013Q3

REPORT INFORMATION
  Report Type: Spontaneous
  Country: CA (occurrence: CA)
  Receive Date: 20130731
  Receipt Date: 20130815
  Transmission Date: 20140515
  Serious: Yes (Other)
  Sender: FDA-Public Use
  Company Number: CA-PFIZER INC-2013218730

PATIENT
  Age: 55 Year
  Sex: Female

DRUGS (4)
  1. VANCOMYCIN [Suspect]
     Indication: MENINGITIS BACTERIAL
     Dosage: UNK
  2. CEFTAZIDIME [Suspect]
     Indication: MENINGITIS BACTERIAL
     Dosage: UNK
  3. CEFTRIAXONE [Suspect]
     Indication: PYREXIA
     Dosage: UNK
  4. MEROPENEM [Suspect]
     Indication: MENINGITIS BACTERIAL
     Dosage: UNK

REACTIONS (3)
  - Drug reaction with eosinophilia and systemic symptoms [Recovered/Resolved]
  - Histiocytosis haematophagic [Recovered/Resolved]
  - Drug hypersensitivity [Recovered/Resolved]
